FAERS Safety Report 19523979 (Version 2)
Quarter: 2021Q3

REPORT INFORMATION
  Report Type: Spontaneous
  Country: US (occurrence: US)
  Receive Date: 20210713
  Receipt Date: 20210721
  Transmission Date: 20211014
  Serious: Yes (Other)
  Sender: FDA-Public Use
  Company Number: US-AUROBINDO-AUR-APL-2021-028829

PATIENT
  Sex: Female
  Weight: 3.4 kg

DRUGS (3)
  1. ATENOLOL. [Suspect]
     Active Substance: ATENOLOL
     Indication: HEART RATE INCREASED
     Dosage: UNK (BEFORE LMP TO DELIVERY)
     Route: 064
  2. XANAX [Suspect]
     Active Substance: ALPRAZOLAM
     Indication: SLEEP DISORDER
     Dosage: UNK (BEFORE LMP TO 6 WEEKS OF GESTATION)
     Route: 064
  3. SEROQUEL [Suspect]
     Active Substance: QUETIAPINE FUMARATE
     Indication: SLEEP DISORDER
     Dosage: UNK (BEFORE LMP TO 20 WEEKS OF GESTATION)
     Route: 064

REACTIONS (2)
  - Foetal exposure during pregnancy [Unknown]
  - Nail-patella syndrome [Unknown]

NARRATIVE: CASE EVENT DATE: 20190327
